FAERS Safety Report 8299150-1 (Version None)
Quarter: 2012Q2

REPORT INFORMATION
  Report Type: 
  Country: None (occurrence: None)
  Receive Date: 20120419
  Receipt Date: 20120411
  Transmission Date: 20120825
  Serious: Yes (Other)
  Sender: FDA-Public Use
  Company Number: US-AMGEN-USASP2011062642

PATIENT
  Age: 52 Year
  Sex: Male

DRUGS (5)
  1. LASIX [Concomitant]
     Dosage: UNK
     Route: 048
  2. ASPIRIN [Concomitant]
     Dosage: UNK
     Route: 048
  3. ENBREL [Suspect]
     Dosage: UNK
     Dates: start: 20090501, end: 20111201
  4. SPIRONOLACTONE [Concomitant]
     Dosage: UNK
     Route: 048
  5. ENBREL [Suspect]
     Indication: PSORIASIS
     Dosage: UNK
     Dates: start: 20120401

REACTIONS (1)
  - POLYCYTHAEMIA VERA [None]
